FAERS Safety Report 19015127 (Version 2)
Quarter: 2021Q1

REPORT INFORMATION
  Report Type: Spontaneous
  Country: US (occurrence: US)
  Receive Date: 20210316
  Receipt Date: 20210319
  Transmission Date: 20210420
  Serious: No
  Sender: FDA-Public Use
  Company Number: US-MYLANLABS-2021M1014108

PATIENT
  Sex: Female
  Weight: 66 kg

DRUGS (1)
  1. FENTANYL TRANSDERMAL SYSTEM [Suspect]
     Active Substance: FENTANYL
     Indication: CONGENITAL CYSTIC KIDNEY DISEASE
     Dosage: 25 MICROGRAM, CHANGES EVERY 72 HOURS
     Route: 062

REACTIONS (3)
  - Wrong technique in device usage process [Recovering/Resolving]
  - Drug ineffective [Recovering/Resolving]
  - Product adhesion issue [Recovering/Resolving]
